FAERS Safety Report 18403949 (Version 1)
Quarter: 2020Q4

REPORT INFORMATION
  Report Type: Spontaneous
  Country: FR (occurrence: FR)
  Receive Date: 20201020
  Receipt Date: 20201020
  Transmission Date: 20210114
  Serious: Yes (Hospitalization)
  Sender: FDA-Public Use
  Company Number: FR-ACCORD-205638

PATIENT
  Age: 49 Year
  Sex: Female
  Weight: 42 kg

DRUGS (3)
  1. METHYLPREDNISOLONE MERCK [Suspect]
     Active Substance: METHYLPREDNISOLONE
     Indication: PREMEDICATION
     Route: 042
     Dates: start: 20200511, end: 20200511
  2. ONDANSETRON ACCORD [Suspect]
     Active Substance: ONDANSETRON
     Indication: PREMEDICATION
     Route: 042
     Dates: start: 20200511, end: 20200511
  3. TRAZIMERA [Suspect]
     Active Substance: TRASTUZUMAB-QYYP
     Indication: BREAST CANCER
     Dates: start: 20200511, end: 20200511

REACTIONS (5)
  - Infusion related reaction [Recovered/Resolved]
  - Chills [Recovered/Resolved]
  - Feeling hot [Recovered/Resolved]
  - Vomiting [Recovered/Resolved]
  - Back pain [Recovered/Resolved]

NARRATIVE: CASE EVENT DATE: 20200511
